FAERS Safety Report 7690999-2 (Version None)
Quarter: 2011Q3

REPORT INFORMATION
  Report Type: 
  Country: None (occurrence: None)
  Receive Date: 20110818
  Receipt Date: 20110808
  Transmission Date: 20111222
  Serious: Yes (Hospitalization, Other)
  Sender: FDA-Public Use
  Company Number: DE-ROCHE-753338

PATIENT
  Sex: Female
  Weight: 70 kg

DRUGS (2)
  1. LEVOTHYROXINE SODIUM [Concomitant]
     Indication: HYPOTHYROIDISM
     Dosage: ONCE IN MORNING
     Route: 048
     Dates: start: 20101216
  2. CAPECITABINE [Suspect]
     Indication: RECTAL CANCER
     Dosage: DATE BEFORE SAE OCCURRED: 02 JULY 2011, SCHEDULE: 5000 MG/M2 PO BID D1-D15 OF 3 WEEK CYCLE.
     Route: 048
     Dates: start: 20101216, end: 20110112

REACTIONS (4)
  - RENAL DISORDER [None]
  - HYPOTENSION [None]
  - DIARRHOEA [None]
  - VOMITING [None]
